FAERS Safety Report 9454439 (Version 1)
Quarter: 2013Q3

REPORT INFORMATION
  Report Type: Report from Study
  Country: US (occurrence: US)
  Receive Date: 20130812
  Receipt Date: 20130812
  Transmission Date: 20140515
  Serious: Yes (Other)
  Sender: FDA-Public Use
  Company Number: US-ROCHE-1256213

PATIENT
  Sex: 0

DRUGS (2)
  1. BEVACIZUMAB [Suspect]
     Indication: MALIGNANT MELANOMA
     Dosage: ON A 28 DAY CYCLE.
     Route: 065
  2. SORAFENIB [Suspect]
     Indication: MALIGNANT MELANOMA
     Dosage: DAYS 1-5 Q 7 DAYS
     Route: 065

REACTIONS (4)
  - Thrombocytopenia [Unknown]
  - Proteinuria [Unknown]
  - Hypertension [Unknown]
  - Palmar-plantar erythrodysaesthesia syndrome [Unknown]
